FAERS Safety Report 17524392 (Version 1)
Quarter: 2020Q1

REPORT INFORMATION
  Report Type: Spontaneous
  Country: GB (occurrence: GB)
  Receive Date: 20200311
  Receipt Date: 20200311
  Transmission Date: 20200409
  Serious: Yes (Hospitalization)
  Sender: FDA-Public Use
  Company Number: GB-TEVA-2020-GB-1196278

PATIENT
  Age: 84 Year
  Sex: Male
  Weight: 80.8 kg

DRUGS (3)
  1. NICORANDIL [Suspect]
     Active Substance: NICORANDIL
     Route: 048
  2. WARFARIN [Suspect]
     Active Substance: WARFARIN
     Indication: ATRIAL FIBRILLATION
     Route: 048
  3. ACETYLSALICYLIC ACID [Suspect]
     Active Substance: ASPIRIN
     Route: 048

REACTIONS (3)
  - Gastric ulcer [Unknown]
  - Melaena [Unknown]
  - Upper gastrointestinal haemorrhage [Recovering/Resolving]

NARRATIVE: CASE EVENT DATE: 20190101
